FAERS Safety Report 5778824-8 (Version None)
Quarter: 2008Q2

REPORT INFORMATION
  Report Type: 
  Country: None (occurrence: None)
  Receive Date: 20080619
  Receipt Date: 20080619
  Transmission Date: 20081010
  Serious: Yes (Hospitalization)
  Sender: FDA-Public Use
  Company Number: PHHO2002NZ05828

PATIENT
  Sex: Female
  Weight: 75 kg

DRUGS (3)
  1. ACLASTA/ZOLEDRONATE T29581+A+SOLINJ [Suspect]
     Indication: OSTEITIS DEFORMANS
     Dosage: 5MG
     Dates: start: 20020729
  2. ACETAMINOPHEN [Concomitant]
     Indication: PAIN
     Dosage: 1 G, QD
     Route: 048
  3. CODEINE SUL TAB [Concomitant]
     Dosage: 15 MG, QD

REACTIONS (10)
  - ACUTE PHASE REACTION [None]
  - ARTHRALGIA [None]
  - CHILLS [None]
  - ERYTHEMA [None]
  - JOINT EFFUSION [None]
  - MYALGIA [None]
  - OEDEMA [None]
  - PAIN [None]
  - POLYARTHRITIS [None]
  - SWELLING [None]
